FAERS Safety Report 11099319 (Version 1)
Quarter: 2015Q2

REPORT INFORMATION
  Report Type: Report from Study
  Country: GB (occurrence: GB)
  Receive Date: 20150508
  Receipt Date: 20150508
  Transmission Date: 20150821
  Serious: Yes (Life-Threatening)
  Sender: FDA-Public Use
  Company Number: GB-BAYER-2015-049740

PATIENT
  Age: 61 Year
  Sex: Female

DRUGS (2)
  1. SORAFENIB (RAF KINASE INHIBITOR) [Suspect]
     Active Substance: SORAFENIB
     Indication: RENAL CELL CARCINOMA
     Dosage: 400 MG, BID
     Route: 048
     Dates: start: 20100930, end: 20110226
  2. TINZAPARIN [Concomitant]
     Active Substance: TINZAPARIN
     Dosage: 20 MG, DAILY
     Dates: start: 20110316, end: 20111024

REACTIONS (4)
  - Fatigue [None]
  - Diarrhoea [None]
  - Decreased appetite [None]
  - Pulmonary infarction [Recovered/Resolved]

NARRATIVE: CASE EVENT DATE: 20110316
